FAERS Safety Report 5099057-7 (Version None)
Quarter: 2006Q3

REPORT INFORMATION
  Report Type: 
  Country: None (occurrence: None)
  Receive Date: 20060731
  Receipt Date: 20060130
  Transmission Date: 20061208
  Serious: Yes (Hospitalization)
  Sender: FDA-Public Use
  Company Number: 221602

PATIENT
  Age: 33 Year
  Sex: Female
  Weight: 84.8 kg

DRUGS (2)
  1. RITUXAN [Suspect]
     Indication: ARTHRITIS
  2. CYTOXAN [Concomitant]

REACTIONS (2)
  - HYPOGAMMAGLOBULINAEMIA [None]
  - PNEUMONIA [None]
